FAERS Safety Report 12436403 (Version 1)
Quarter: 2016Q2

REPORT INFORMATION
  Report Type: Spontaneous
  Country: US (occurrence: US)
  Receive Date: 20160606
  Receipt Date: 20160606
  Transmission Date: 20160815
  Serious: No
  Sender: FDA-Public Use
  Company Number: US-AUROBINDO-AUR-APU-2015-07268

PATIENT
  Age: 75 Year
  Sex: Female

DRUGS (2)
  1. VENLAFAXINE EXTENDED RELEASE CAPSULE [Suspect]
     Active Substance: VENLAFAXINE HYDROCHLORIDE
     Indication: PRODUCT USED FOR UNKNOWN INDICATION
     Dosage: 37.5 MG, UNK
     Route: 065
  2. VENLAFAXINE EXTENDED RELEASE CAPSULE [Suspect]
     Active Substance: VENLAFAXINE HYDROCHLORIDE
     Dosage: 75 MG, UNK
     Route: 065

REACTIONS (2)
  - Cough [Unknown]
  - Throat irritation [Unknown]
